FAERS Safety Report 21489211 (Version 2)
Quarter: 2022Q4

REPORT INFORMATION
  Report Type: Other
  Country: TR (occurrence: None)
  Receive Date: 20221021
  Receipt Date: 20221027
  Transmission Date: 20230113
  Serious: Yes (Other)
  Sender: FDA-Public Use
  Company Number: TR-ROCHE-3203554

PATIENT
  Age: 28 Year
  Sex: Female

DRUGS (1)
  1. RITUXIMAB [Suspect]
     Active Substance: RITUXIMAB
     Indication: Myasthenia gravis
     Dosage: FIRST INFUSION
     Route: 042

REACTIONS (2)
  - Cutaneous vasculitis [Recovered/Resolved]
  - Off label use [Unknown]
